FAERS Safety Report 8485680-6 (Version None)
Quarter: 2012Q3

REPORT INFORMATION
  Report Type: 
  Country: None (occurrence: None)
  Receive Date: 20120703
  Receipt Date: 20120625
  Transmission Date: 20120928
  Serious: Yes (Other)
  Sender: FDA-Public Use
  Company Number: US-ASTRAZENECA-2012SE42571

PATIENT
  Sex: Male

DRUGS (5)
  1. PREVACID [Suspect]
     Route: 065
  2. PRILOSEC [Suspect]
     Route: 048
  3. ATENOLOL [Concomitant]
     Indication: BLOOD PRESSURE ABNORMAL
  4. UNSPECIFIED STEROIDS [Concomitant]
     Indication: HEPATITIS C
  5. PROTONIX [Suspect]
     Indication: HYPERCHLORHYDRIA
     Route: 065
     Dates: start: 20040401

REACTIONS (3)
  - DRUG ABUSE [None]
  - LOWER LIMB FRACTURE [None]
  - INJURY [None]
